FAERS Safety Report 13578418 (Version 1)
Quarter: 2017Q2

REPORT INFORMATION
  Report Type: Spontaneous
  Country: GB (occurrence: GB)
  Receive Date: 20170525
  Receipt Date: 20170525
  Transmission Date: 20170830
  Serious: Yes (Other)
  Sender: FDA-Public Use
  Company Number: GB-TEVA-769471ACC

PATIENT
  Age: 17 Year
  Sex: Male
  Weight: 79 kg

DRUGS (1)
  1. TRIMETHOPRIM PILLULES [Suspect]
     Active Substance: TRIMETHOPRIM
     Indication: ACNE
     Dosage: 4 PILL, 2 TIMES A DAY. 1 X 100MG PLUS 1 X 200MG = 300MG TWICE PER DAY , 300MG
     Route: 048
     Dates: start: 20161217, end: 20161227

REACTIONS (10)
  - Headache [Unknown]
  - Dry skin [Unknown]
  - Skin irritation [Unknown]
  - Blister [Unknown]
  - Pruritus [Not Recovered/Not Resolved]
  - Dizziness [Unknown]
  - Dermatitis allergic [Recovering/Resolving]
  - Burning sensation [Unknown]
  - Erythema [Unknown]
  - Pain of skin [Unknown]

NARRATIVE: CASE EVENT DATE: 201612
